FAERS Safety Report 5478669-2 (Version None)
Quarter: 2007Q4

REPORT INFORMATION
  Report Type: 
  Country: None (occurrence: None)
  Receive Date: 20071005
  Receipt Date: 20070927
  Transmission Date: 20080405
  Serious: Yes (Disabling, Other)
  Sender: FDA-Public Use
  Company Number: FR-ABBOTT-07P-056-0418798-00

PATIENT
  Sex: Male

DRUGS (68)
  1. NORVIR [Suspect]
     Indication: ACQUIRED IMMUNODEFICIENCY SYNDROME
     Route: 048
     Dates: start: 19990921
  2. NORVIR [Suspect]
     Dates: start: 20000606
  3. NORVIR [Suspect]
     Dates: start: 20010323
  4. NORVIR [Suspect]
     Dates: start: 20020318
  5. NORVIR [Suspect]
     Dates: start: 20040417
  6. NORVIR [Suspect]
     Dates: start: 20041015
  7. NORVIR [Suspect]
     Dates: start: 20050329
  8. NORVIR [Suspect]
     Dates: start: 20050617
  9. NORVIR [Suspect]
     Dates: start: 20050928
  10. NORVIR [Suspect]
     Dates: start: 20060623
  11. KALETRA [Suspect]
     Indication: HIV INFECTION
     Dates: start: 20000901
  12. KALETRA [Suspect]
     Dates: start: 20030103
  13. KALETRA [Suspect]
     Dates: start: 20030912
  14. ZIDOVUDINE [Suspect]
     Indication: ACQUIRED IMMUNODEFICIENCY SYNDROME
     Route: 048
     Dates: start: 19920101, end: 19970101
  15. ZIDOVUDINE [Suspect]
     Dates: start: 20050617
  16. ZIDOVUDINE [Suspect]
     Dates: start: 20050928
  17. ZIDOVUDINE [Suspect]
     Dates: start: 20060623
  18. TENOFOVIR DISOPROXIL [Suspect]
     Indication: ACQUIRED IMMUNODEFICIENCY SYNDROME
     Route: 048
     Dates: start: 20020318
  19. TENOFOVIR DISOPROXIL [Suspect]
     Dates: start: 20030103
  20. TENOFOVIR DISOPROXIL [Suspect]
     Dates: start: 20030912
  21. TENOFOVIR DISOPROXIL [Suspect]
     Dates: start: 20040417
  22. TENOFOVIR DISOPROXIL [Suspect]
     Dates: start: 20041015
  23. TENOFOVIR DISOPROXIL [Suspect]
     Dates: start: 20050329
  24. TENOFOVIR DISOPROXIL [Suspect]
     Dates: start: 20050617
  25. TENOFOVIR DISOPROXIL [Suspect]
     Dates: start: 20050928
  26. TENOFOVIR DISOPROXIL [Suspect]
     Dates: start: 20060623
  27. SAQUINAVIR [Suspect]
     Indication: ACQUIRED IMMUNODEFICIENCY SYNDROME
     Route: 048
     Dates: start: 19970319
  28. SAQUINAVIR [Suspect]
     Dates: start: 20060623
  29. PREGABALIN [Suspect]
     Indication: TRIGEMINAL NEURALGIA
     Route: 048
     Dates: start: 20060623, end: 20060720
  30. GABAPENTIN [Suspect]
     Indication: TRIGEMINAL NEURALGIA
     Route: 048
     Dates: start: 20060101
  31. BACTRIM [Suspect]
     Indication: DRUG USE FOR UNKNOWN INDICATION
     Route: 048
     Dates: start: 19980901
  32. BACTRIM [Suspect]
     Dates: start: 19981027
  33. BACTRIM [Suspect]
     Dates: start: 20020318
  34. BACTRIM [Suspect]
     Dates: start: 20050928
  35. BACTRIM [Suspect]
     Dates: start: 20060623
  36. FOSAMPRENAVIR [Suspect]
     Indication: ACQUIRED IMMUNODEFICIENCY SYNDROME
     Route: 048
     Dates: start: 20050329, end: 20060623
  37. LAMIVUDINE + ZIDOVUDINE [Suspect]
     Indication: ACQUIRED IMMUNODEFICIENCY SYNDROME
     Route: 048
     Dates: start: 19990511, end: 19990801
  38. LAMIVUDINE + ZIDOVUDINE [Suspect]
     Dates: start: 20010323
  39. LAMIVUDINE + ZIDOVUDINE [Suspect]
     Dates: start: 20050928
  40. LAMIVUDINE + ZIDOVUDINE [Suspect]
     Dates: end: 20060623
  41. STAVUDINE [Concomitant]
     Indication: DRUG USE FOR UNKNOWN INDICATION
     Dates: start: 19970319
  42. STAVUDINE [Concomitant]
     Dates: start: 19970617
  43. STAVUDINE [Concomitant]
     Dates: start: 19970923
  44. STAVUDINE [Concomitant]
     Dates: start: 19980401
  45. STAVUDINE [Concomitant]
     Dates: start: 19990223
  46. STAVUDINE [Concomitant]
     Dates: start: 19990921
  47. STAVUDINE [Concomitant]
     Dates: start: 20000606
  48. INDINIVIR SULFATE [Concomitant]
     Indication: DRUG USE FOR UNKNOWN INDICATION
     Dates: start: 20070617
  49. INDINIVIR SULFATE [Concomitant]
     Dates: start: 19990921
  50. INDINIVIR SULFATE [Concomitant]
     Dates: start: 20000606
  51. DIDANOSINE [Concomitant]
     Indication: DRUG USE FOR UNKNOWN INDICATION
     Dates: start: 19970319
  52. DIDANOSINE [Concomitant]
     Dates: start: 19970617
  53. DIDANOSINE [Concomitant]
     Dates: start: 19970923
  54. DIDANOSINE [Concomitant]
     Dates: start: 19990921
  55. DIDANOSINE [Concomitant]
     Dates: start: 20000901
  56. LAMIVUDINE [Concomitant]
     Indication: DRUG USE FOR UNKNOWN INDICATION
     Dates: start: 19980401
  57. LAMIVUDINE [Concomitant]
     Dates: start: 20000901
  58. AMPRENAVIR [Concomitant]
     Indication: DRUG USE FOR UNKNOWN INDICATION
     Dates: start: 20010323
  59. AMPRENAVIR [Concomitant]
     Dates: start: 20050329
  60. AMPRENAVIR [Concomitant]
     Dates: start: 20050617
  61. AMPRENAVIR [Concomitant]
     Dates: start: 20050928
  62. ENFUVIRTIDE [Concomitant]
     Indication: DRUG USE FOR UNKNOWN INDICATION
     Dates: start: 20030912
  63. ENFUVIRTIDE [Concomitant]
     Dates: start: 20040417
  64. ATAZANAVIR SULFATE [Concomitant]
     Indication: DRUG USE FOR UNKNOWN INDICATION
     Dates: start: 20040417
  65. ATAZANAVIR SULFATE [Concomitant]
     Dates: start: 20041015
  66. ABACAVIR SULFATE [Concomitant]
     Indication: DRUG USE FOR UNKNOWN INDICATION
     Dates: start: 20041015
  67. CYAMEMAZINE [Concomitant]
     Indication: DRUG USE FOR UNKNOWN INDICATION
     Dates: start: 20041015
  68. AMITRIPTYLINE HCL [Concomitant]
     Indication: DRUG USE FOR UNKNOWN INDICATION
     Dates: start: 20041015

REACTIONS (19)
  - AIDS ENCEPHALOPATHY [None]
  - ANOGENITAL WARTS [None]
  - ASTHENIA [None]
  - BALANCE DISORDER [None]
  - GLAUCOMA [None]
  - LEUKOENCEPHALOPATHY [None]
  - MASS [None]
  - MEMORY IMPAIRMENT [None]
  - MONONEUROPATHY [None]
  - NEURALGIA [None]
  - OPTIC NEURITIS RETROBULBAR [None]
  - OPTIC NEUROPATHY [None]
  - PSORIASIS [None]
  - SENSORY DISTURBANCE [None]
  - TREATMENT NONCOMPLIANCE [None]
  - TRIGEMINAL NEURALGIA [None]
  - VIRAL LOAD DECREASED [None]
  - VISUAL ACUITY REDUCED [None]
  - VISUAL DISTURBANCE [None]
